FAERS Safety Report 8304909-8 (Version None)
Quarter: 2012Q2

REPORT INFORMATION
  Report Type: 
  Country: None (occurrence: None)
  Receive Date: 20120423
  Receipt Date: 20120413
  Transmission Date: 20120825
  Serious: Yes (Other)
  Sender: FDA-Public Use
  Company Number: US-ASTRAZENECA-2011SE68539

PATIENT
  Age: 59 Year
  Sex: Female

DRUGS (1)
  1. NEXIUM [Suspect]
     Route: 048

REACTIONS (6)
  - DISCOMFORT [None]
  - INTENTIONAL DRUG MISUSE [None]
  - VOMITING [None]
  - CEREBROVASCULAR ACCIDENT [None]
  - MALAISE [None]
  - GASTROOESOPHAGEAL REFLUX DISEASE [None]
